FAERS Safety Report 11687726 (Version 2)
Quarter: 2015Q4

REPORT INFORMATION
  Report Type: Report from Study
  Country: US (occurrence: US)
  Receive Date: 20151030
  Receipt Date: 20151123
  Transmission Date: 20160304
  Serious: Yes (Hospitalization)
  Sender: FDA-Public Use
  Company Number: US-VERTEX PHARMACEUTICALS-2015-003373

PATIENT
  Age: 42 Year
  Sex: Male

DRUGS (1)
  1. ORKAMBI [Suspect]
     Active Substance: IVACAFTOR\LUMACAFTOR
     Indication: CYSTIC FIBROSIS
     Dosage: 400MG-250MG , BID
     Route: 048
     Dates: start: 20150814

REACTIONS (7)
  - Haemoptysis [Not Recovered/Not Resolved]
  - Postoperative thoracic procedure complication [Not Recovered/Not Resolved]
  - Skin discolouration [Unknown]
  - Pain in extremity [Unknown]
  - Productive cough [Not Recovered/Not Resolved]
  - Peripheral swelling [Unknown]
  - Musculoskeletal chest pain [Unknown]

NARRATIVE: CASE EVENT DATE: 201508
